FAERS Safety Report 12905477 (Version 1)
Quarter: 2016Q4

REPORT INFORMATION
  Report Type: Report from Study
  Country: JP (occurrence: JP)
  Receive Date: 20161103
  Receipt Date: 20161103
  Transmission Date: 20170207
  Serious: Yes (Hospitalization, Other)
  Sender: FDA-Public Use
  Company Number: JP-BRISTOL-MYERS SQUIBB COMPANY-BMS-2016-024770

PATIENT
  Age: 63 Year
  Sex: Male

DRUGS (1)
  1. NIVOLUMAB [Suspect]
     Active Substance: NIVOLUMAB
     Indication: NON-SMALL CELL LUNG CANCER RECURRENT
     Dosage: 3 MG/KG, Q2WK
     Route: 041
     Dates: start: 20160316, end: 20160328

REACTIONS (7)
  - Anorectal operation [Recovered/Resolved]
  - Infusion related reaction [Recovered/Resolved]
  - Rectal cancer [Recovered/Resolved]
  - Bronchitis [Recovering/Resolving]
  - Rash [Recovered/Resolved]
  - Thyroiditis [Not Recovered/Not Resolved]
  - Hidradenocarcinoma [Not Recovered/Not Resolved]

NARRATIVE: CASE EVENT DATE: 2016
